FAERS Safety Report 24854988 (Version 1)
Quarter: 2025Q1

REPORT INFORMATION
  Report Type: Spontaneous
  Country: US (occurrence: US)
  Receive Date: 20250117
  Receipt Date: 20250117
  Transmission Date: 20250409
  Serious: No
  Sender: CURRAX PHARMACEUTICALS
  Company Number: US-CURRAX PHARMACEUTICALS-2021-012140

PATIENT
  Age: 47 Year
  Sex: Female

DRUGS (1)
  1. CONTRAVE [Suspect]
     Active Substance: BUPROPION HYDROCHLORIDE\NALTREXONE HYDROCHLORIDE
     Indication: Weight control
     Route: 048

REACTIONS (9)
  - Musculoskeletal stiffness [Unknown]
  - Chest pain [Unknown]
  - Flatulence [Unknown]
  - Tremor [Unknown]
  - Hyperhidrosis [Unknown]
  - Hot flush [Unknown]
  - Diarrhoea [Unknown]
  - Insomnia [Unknown]
  - Feeling abnormal [Unknown]
